FAERS Safety Report 10740419 (Version 2)
Quarter: 2015Q1

REPORT INFORMATION
  Report Type: Spontaneous
  Country: JP (occurrence: JP)
  Receive Date: 20150127
  Receipt Date: 20150320
  Transmission Date: 20150721
  Serious: Yes (Other)
  Sender: FDA-Public Use
  Company Number: JP-ROCHE-1526560

PATIENT
  Age: 47 Year
  Sex: Female

DRUGS (10)
  1. MIGSIS [Concomitant]
     Active Substance: LOMERIZINE HYDROCHLORIDE
     Route: 048
  2. ACINON [Concomitant]
     Active Substance: NIZATIDINE
     Route: 048
     Dates: start: 20141015
  3. TAMIFLU [Suspect]
     Active Substance: OSELTAMIVIR PHOSPHATE
     Indication: ANTIVIRAL PROPHYLAXIS
     Route: 048
     Dates: start: 20150115, end: 20150115
  4. LOXONIN [Concomitant]
     Active Substance: LOXOPROFEN SODIUM
     Route: 048
  5. TAMIFLU [Suspect]
     Active Substance: OSELTAMIVIR PHOSPHATE
     Indication: ANTIVIRAL PROPHYLAXIS
     Route: 048
     Dates: start: 20150109, end: 20150113
  6. SEDIEL [Concomitant]
     Active Substance: TANDOSPIRONE
     Route: 048
  7. RELPAX [Concomitant]
     Active Substance: ELETRIPTAN HYDROBROMIDE
     Indication: MIGRAINE
     Dosage: DOSAGE IS UNCERTAIN. ?SINGLE USE
     Route: 048
  8. GANATON [Concomitant]
     Active Substance: ITOPRIDE
     Route: 048
  9. TOCOPHEROL NICOTINATE [Concomitant]
     Active Substance: TOCOPHERYL NICOTINATE, D-.ALPHA.
     Dosage: DRUG WAS REPORTED AS NE-SOFT
     Route: 048
  10. HI-Z [Concomitant]
     Route: 048

REACTIONS (8)
  - Tremor [Recovered/Resolved]
  - Feeling abnormal [Recovered/Resolved]
  - Dizziness [Recovered/Resolved]
  - Vascular insufficiency [Recovered/Resolved]
  - Hypoaesthesia [Recovered/Resolved]
  - Paraesthesia [Recovered/Resolved]
  - Discomfort [Unknown]
  - Respiratory distress [Recovered/Resolved]

NARRATIVE: CASE EVENT DATE: 20150112
